FAERS Safety Report 9442893 (Version 3)
Quarter: 2013Q4

REPORT INFORMATION
  Report Type: Spontaneous
  Country: US (occurrence: US)
  Receive Date: 20130806
  Receipt Date: 20131213
  Transmission Date: 20140711
  Serious: Yes (Other)
  Sender: FDA-Public Use
  Company Number: US-PFIZER INC-2013227446

PATIENT
  Age: 28 Year
  Sex: Female
  Weight: 65.76 kg

DRUGS (9)
  1. CELLCEPT [Suspect]
     Indication: SYSTEMIC LUPUS ERYTHEMATOSUS
     Dosage: 1500 MG, 4X/DAY
     Route: 048
     Dates: start: 20100412, end: 20130325
  2. CELLCEPT [Suspect]
     Indication: LUPUS NEPHRITIS
     Dosage: UNK
     Route: 048
  3. CELLCEPT [Suspect]
     Indication: RENAL DISORDER
  4. PREDNISONE [Concomitant]
     Indication: INFLAMMATION
     Dosage: 5 MG, 1X/DAY
     Route: 048
     Dates: start: 2002
  5. PLAQUENIL [Concomitant]
     Indication: IMMUNE SYSTEM DISORDER
     Dosage: 200 MG, 2X/DAY
     Route: 048
     Dates: start: 200210
  6. BENAZEPRIL [Concomitant]
     Indication: HYPERTENSION
     Dosage: 40 MG, 1X/DAY
     Route: 048
     Dates: end: 20130221
  7. MORPHINE [Concomitant]
     Indication: PAIN
     Dosage: 20 MG, 2X/DAY
     Route: 048
     Dates: start: 2009
  8. MORPHINE [Concomitant]
     Indication: PAIN IN EXTREMITY
     Dosage: 10 MG, 2X/DAY
     Route: 048
     Dates: start: 2009
  9. PERCOCET [Concomitant]
     Indication: PAIN IN EXTREMITY
     Dosage: 2 DF(OXYCODONE 5MG/ ACETAMINOPHEN 325MG), 2X/DAY
     Route: 048
     Dates: start: 2005

REACTIONS (1)
  - Arthropathy [Unknown]
